FAERS Safety Report 18339339 (Version 1)
Quarter: 2020Q4

REPORT INFORMATION
  Report Type: Spontaneous
  Country: US (occurrence: US)
  Receive Date: 20201002
  Receipt Date: 20201002
  Transmission Date: 20210113
  Serious: Yes (Hospitalization)
  Sender: FDA-Public Use
  Company Number: None

PATIENT
  Age: 69 Year
  Sex: Female
  Weight: 75 kg

DRUGS (3)
  1. TOPIRAMATE 25 MG TWICE A DAY [Concomitant]
  2. CITALOPRAM [Suspect]
     Active Substance: CITALOPRAM HYDROBROMIDE
     Indication: DEPRESSION
     Route: 048
  3. AIMOVIG [Suspect]
     Active Substance: ERENUMAB-AOOE
     Indication: MIGRAINE
     Dosage: ?          OTHER FREQUENCY:MONTHLY;?
     Route: 058
     Dates: start: 20200220, end: 20200928

REACTIONS (12)
  - Nausea [None]
  - Loss of consciousness [None]
  - Abdominal discomfort [None]
  - Inappropriate antidiuretic hormone secretion [None]
  - Dysarthria [None]
  - Headache [None]
  - Dizziness [None]
  - Muscle spasms [None]
  - Dyspepsia [None]
  - Vomiting [None]
  - Hyponatraemia [None]
  - Hypochloraemia [None]

NARRATIVE: CASE EVENT DATE: 20200928
